FAERS Safety Report 6882314-9 (Version None)
Quarter: 2010Q3

REPORT INFORMATION
  Report Type: 
  Country: None (occurrence: None)
  Receive Date: 20100729
  Receipt Date: 20090824
  Transmission Date: 20110219
  Serious: No
  Sender: FDA-Public Use
  Company Number: US-MYLANLABS-2009S1015003

PATIENT
  Age: 45 Year
  Sex: Female

DRUGS (9)
  1. LEVOTHYROXINE SODIUM [Suspect]
     Indication: HYPOTHYROIDISM
     Route: 048
     Dates: start: 20090501
  2. LEVOTHYROXINE SODIUM [Suspect]
     Route: 048
     Dates: start: 20090501
  3. SINGULAIR [Concomitant]
  4. ZYRTEC [Concomitant]
  5. MULTI-VITAMIN [Concomitant]
  6. XANAX [Concomitant]
  7. LEXAPRO [Concomitant]
  8. OXYCODONE [Concomitant]
  9. OXYCONTIN [Concomitant]

REACTIONS (3)
  - DENTAL CARIES [None]
  - TOOTH DISCOLOURATION [None]
  - TOOTH DISORDER [None]
